FAERS Safety Report 8930467 (Version 2)
Quarter: 2012Q4

REPORT INFORMATION
  Report Type: 
  Country: US (occurrence: US)
  Receive Date: 20121128
  Receipt Date: 20121230
  Transmission Date: 20130627
  Serious: Yes (Life-Threatening)
  Sender: FDA-Public Use
  Company Number: US-ALEXION-A201202229

PATIENT
  Sex: Male

DRUGS (1)
  1. SOLIRIS 300MG [Suspect]
     Indication: PAROXYSMAL NOCTURNAL HAEMOGLOBINURIA
     Dosage: 900 mg, UNK
     Route: 042
     Dates: end: 20121004

REACTIONS (2)
  - Life expectancy shortened [Not Recovered/Not Resolved]
  - Malaise [Not Recovered/Not Resolved]
